FAERS Safety Report 6772740-0 (Version None)
Quarter: 2010Q2

REPORT INFORMATION
  Report Type: 
  Country: None (occurrence: None)
  Receive Date: 20100616
  Receipt Date: 20100607
  Transmission Date: 20101027
  Serious: Yes (Hospitalization, Other)
  Sender: FDA-Public Use
  Company Number: JP-WYE-H15119110

PATIENT
  Age: 59 Year
  Sex: Female
  Weight: 45 kg

DRUGS (1)
  1. PREMARIN [Suspect]
     Indication: HORMONE REPLACEMENT THERAPY
     Route: 048
     Dates: start: 19970401, end: 20050101

REACTIONS (1)
  - ADENOCARCINOMA [None]
